FAERS Safety Report 7405196-5 (Version None)
Quarter: 2011Q1

REPORT INFORMATION
  Report Type: 
  Country: None (occurrence: None)
  Receive Date: 20110330
  Receipt Date: 20110318
  Transmission Date: 20110831
  Serious: Yes (Other)
  Sender: FDA-Public Use
  Company Number: IPC201103-000346

PATIENT
  Sex: Male

DRUGS (2)
  1. REGLAN [Suspect]
     Dosage: ORAL
     Route: 048
     Dates: start: 20100701, end: 20100801
  2. METOCLOPRAMIDE [Suspect]
     Dosage: 5 MG, ORAL
     Route: 048
     Dates: start: 20100701, end: 20100801

REACTIONS (3)
  - RESTLESS LEGS SYNDROME [None]
  - DYSKINESIA [None]
  - MYOCLONUS [None]
